FAERS Safety Report 8192702-9 (Version None)
Quarter: 2012Q1

REPORT INFORMATION
  Report Type: 
  Country: None (occurrence: None)
  Receive Date: 20120308
  Receipt Date: 20120302
  Transmission Date: 20120608
  Serious: No
  Sender: FDA-Public Use
  Company Number: US-BAYER-2012-022235

PATIENT
  Age: 60 Year
  Sex: Male

DRUGS (3)
  1. CELEBREX [Concomitant]
  2. NEXAVAR [Suspect]
     Indication: MALIGNANT SOFT TISSUE NEOPLASM
     Dosage: 200 MG, QID
     Route: 048
     Dates: start: 20120207
  3. LYRICA [Concomitant]

REACTIONS (1)
  - DIARRHOEA [None]
